FAERS Safety Report 24637202 (Version 1)
Quarter: 2024Q4

REPORT INFORMATION
  Report Type: Spontaneous
  Country: US (occurrence: None)
  Receive Date: 20241119
  Receipt Date: 20241119
  Transmission Date: 20250114
  Serious: Yes (Hospitalization)
  Sender: Public
  Company Number: None

PATIENT
  Sex: Female

DRUGS (11)
  1. TEZSPIRE [Suspect]
     Active Substance: TEZEPELUMAB-EKKO
     Indication: Asthma
     Dosage: FREQ: INJECT 1 PEN UNDER THE SKIN (SUBCUTANEOUS INJECTION) EVERY FOUR WEEKS
     Route: 058
     Dates: start: 20241004
  2. ALBUTEROL [Concomitant]
     Active Substance: ALBUTEROL
  3. ALPHA LIPOIC [Concomitant]
  4. AZELASTINE [Concomitant]
     Active Substance: AZELASTINE
  5. BIOTIN [Concomitant]
     Active Substance: BIOTIN
  6. CALCIUM CIT/TAB VIT D [Concomitant]
  7. CETIRIZINE HCL [Concomitant]
     Active Substance: CETIRIZINE HYDROCHLORIDE
  8. CO-ENZYME 01 [Concomitant]
  9. COLLAGEN [Concomitant]
     Active Substance: COLLAGEN
  10. FAMOTIDINE [Concomitant]
     Active Substance: FAMOTIDINE
  11. FISH OIL [Concomitant]
     Active Substance: FISH OIL

REACTIONS (1)
  - Heart rate increased [None]
